FAERS Safety Report 5727919-3 (Version None)
Quarter: 2008Q2

REPORT INFORMATION
  Report Type: 
  Country: None (occurrence: None)
  Receive Date: 20080505
  Receipt Date: 20080423
  Transmission Date: 20081010
  Serious: Yes (Hospitalization, Congenital Anomaly)
  Sender: FDA-Public Use
  Company Number: JP-PFIZER INC-2008017840

PATIENT
  Sex: Male
  Weight: 3 kg

DRUGS (5)
  1. GABAPEN [Suspect]
     Indication: EPILEPSY
  2. ALEVIATIN [Suspect]
     Indication: EPILEPSY
  3. HYDANTOL [Suspect]
  4. CLOBAZAM [Suspect]
     Indication: EPILEPSY
     Dosage: DAILY DOSE:10MG
  5. FOLIAMIN [Suspect]
     Dates: start: 20070908, end: 20080112

REACTIONS (4)
  - DRUG EXPOSURE DURING PREGNANCY [None]
  - FOETAL ANTICONVULSANT SYNDROME [None]
  - GAMMA-GLUTAMYLTRANSFERASE INCREASED [None]
  - HYPERCALCAEMIA [None]
